FAERS Safety Report 11309501 (Version 3)
Quarter: 2015Q3

REPORT INFORMATION
  Report Type: Spontaneous
  Country: JP (occurrence: JP)
  Receive Date: 20150724
  Receipt Date: 20150908
  Transmission Date: 20151125
  Serious: Yes (Other)
  Sender: FDA-Public Use
  Company Number: JP-GLAXOSMITHKLINE-JP2015JPN100024

PATIENT
  Age: 82 Year
  Sex: Male

DRUGS (2)
  1. VOTRIENT [Suspect]
     Active Substance: PAZOPANIB HYDROCHLORIDE
     Dosage: 400 MG, 1D
     Route: 048
  2. VOTRIENT [Suspect]
     Active Substance: PAZOPANIB HYDROCHLORIDE
     Indication: EXTRA-OSSEOUS EWING^S SARCOMA
     Dosage: 800 MG, 1D
     Route: 048
     Dates: start: 201406

REACTIONS (5)
  - Decreased appetite [Recovering/Resolving]
  - Oedema [Unknown]
  - Extra-osseous Ewing^s sarcoma [Unknown]
  - Platelet count decreased [Recovered/Resolved]
  - Dyspnoea [Unknown]

NARRATIVE: CASE EVENT DATE: 20140716
